FAERS Safety Report 16366497 (Version 1)
Quarter: 2019Q2

REPORT INFORMATION
  Report Type: Report from Study
  Country: US (occurrence: US)
  Receive Date: 20190529
  Receipt Date: 20190529
  Transmission Date: 20190711
  Serious: Yes (Hospitalization)
  Sender: FDA-Public Use
  Company Number: US-ROCHE-2322013

PATIENT
  Age: 63 Year
  Sex: Female
  Weight: 85.81 kg

DRUGS (4)
  1. OCREVUS [Suspect]
     Active Substance: OCRELIZUMAB
     Indication: SECONDARY PROGRESSIVE MULTIPLE SCLEROSIS
     Dosage: SUBSEQUENT DOSES ON: 13/AUG/2018, 08/FEB/2019
     Route: 065
  2. TYLENOL [Concomitant]
     Active Substance: ACETAMINOPHEN
     Indication: OFF LABEL USE
  3. TYLENOL [Concomitant]
     Active Substance: ACETAMINOPHEN
     Indication: ARTHRITIS
     Dosage: TAKING FOR A LONG TIME
     Route: 065
  4. OCREVUS [Suspect]
     Active Substance: OCRELIZUMAB
     Indication: OFF LABEL USE

REACTIONS (8)
  - Cholelithiasis [Unknown]
  - Off label use [Unknown]
  - Malaise [Not Recovered/Not Resolved]
  - Intentional product use issue [Unknown]
  - Device occlusion [Recovered/Resolved]
  - Gastric infection [Recovering/Resolving]
  - Fatigue [Unknown]
  - Pain [Not Recovered/Not Resolved]

NARRATIVE: CASE EVENT DATE: 201905
